FAERS Safety Report 18414173 (Version 1)
Quarter: 2020Q4

REPORT INFORMATION
  Report Type: Spontaneous
  Country: IL (occurrence: IL)
  Receive Date: 20201022
  Receipt Date: 20201022
  Transmission Date: 20210114
  Serious: Yes (Hospitalization, Other)
  Sender: FDA-Public Use
  Company Number: IL-PFIZER INC-2020407421

PATIENT
  Age: 21 Year
  Sex: Female

DRUGS (1)
  1. PHENYTOIN. [Suspect]
     Active Substance: PHENYTOIN
     Indication: PSYCHOGENIC SEIZURE
     Dosage: 600 MG, DAILY (SERUM LEVELS 16 UG/DL)

REACTIONS (5)
  - Skin necrosis [Recovered/Resolved]
  - Product use in unapproved indication [Recovered/Resolved]
  - Purpura fulminans [Recovered/Resolved]
  - Off label use [Recovered/Resolved]
  - Drug hypersensitivity [Recovered/Resolved]
